FAERS Safety Report 7532756-3 (Version None)
Quarter: 2011Q2

REPORT INFORMATION
  Report Type: 
  Country: None (occurrence: None)
  Receive Date: 20110608
  Receipt Date: 20110531
  Transmission Date: 20111010
  Serious: Yes (Hospitalization)
  Sender: FDA-Public Use
  Company Number: A0930640A

PATIENT
  Age: 28 Year
  Sex: Female

DRUGS (1)
  1. VERAMYST [Suspect]
     Dosage: 27.5MCG UNKNOWN
     Route: 045

REACTIONS (2)
  - MALAISE [None]
  - ADVERSE EVENT [None]
